FAERS Safety Report 4765004-8 (Version None)
Quarter: 2005Q3

REPORT INFORMATION
  Report Type: 
  Country: None (occurrence: None)
  Receive Date: 20050907
  Receipt Date: 20050826
  Transmission Date: 20060218
  Serious: Yes (Other)
  Sender: FDA-Public Use
  Company Number: 2005121460

PATIENT
  Sex: Female

DRUGS (1)
  1. NORVASC [Suspect]
     Indication: ILL-DEFINED DISORDER

REACTIONS (4)
  - ASTHMA [None]
  - BLOOD PRESSURE ABNORMAL [None]
  - HYPERSENSITIVITY [None]
  - POSTNASAL DRIP [None]
